FAERS Safety Report 22611199 (Version 2)
Quarter: 2023Q2

REPORT INFORMATION
  Report Type: Spontaneous
  Country: MC (occurrence: US)
  Receive Date: 20230616
  Receipt Date: 20230623
  Transmission Date: 20230721
  Serious: No
  Sender: FDA-Public Use
  Company Number: MC-PFIZER INC-PV202300104949

PATIENT
  Age: 80 Year
  Sex: Female
  Weight: 48 kg

DRUGS (1)
  1. PAXLOVID [Suspect]
     Active Substance: NIRMATRELVIR\RITONAVIR
     Indication: COVID-19 treatment
     Dosage: [NIRMATRELVIR 300 MG] / [RITONAVIR 100 MG], 2X/DAY
     Dates: start: 20230611

REACTIONS (5)
  - Diarrhoea [Recovered/Resolved]
  - Product taste abnormal [Recovering/Resolving]
  - Dysgeusia [Recovering/Resolving]
  - Intentional product misuse [Unknown]
  - Wrong technique in product usage process [Unknown]

NARRATIVE: CASE EVENT DATE: 20230611
